FAERS Safety Report 4536597-0 (Version None)
Quarter: 2004Q4

REPORT INFORMATION
  Report Type: 
  Country: None (occurrence: None)
  Receive Date: 20041223
  Receipt Date: 20041216
  Transmission Date: 20050328
  Serious: Yes (Hospitalization)
  Sender: FDA-Public Use
  Company Number: US-BRISTOL-MYERS SQUIBB COMPANY-12798112

PATIENT
  Age: 83 Year
  Sex: Female
  Weight: 63 kg

DRUGS (2)
  1. CETUXIMAB [Suspect]
     Indication: PANCREATIC CARCINOMA
     Dosage: INITIAL TX DATE: 29-SEP-04.  420 MG TOTAL DOSE ADM THIS COURSE.
     Route: 042
     Dates: start: 20041027, end: 20041027
  2. GEMCITABINE [Suspect]
     Indication: PANCREATIC CARCINOMA
     Dosage: INITIAL TX DATE: 29-SEP-04.  DOSAGE HELD ON 27-OCT-04 DUE TO UTI.
     Route: 042
     Dates: start: 20040929

REACTIONS (5)
  - DEHYDRATION [None]
  - ESCHERICHIA INFECTION [None]
  - FALL [None]
  - MUSCULAR WEAKNESS [None]
  - URINARY TRACT INFECTION [None]
